FAERS Safety Report 4944635-6 (Version None)
Quarter: 2006Q1

REPORT INFORMATION
  Report Type: 
  Country: None (occurrence: None)
  Receive Date: 20060113
  Receipt Date: 20050113
  Transmission Date: 20060701
  Serious: Yes (Other)
  Sender: FDA-Public Use
  Company Number: HQWYE203216JUL04

PATIENT
  Age: 51 Year
  Sex: Female
  Weight: 80.36 kg

DRUGS (4)
  1. PREMPRO [Suspect]
     Dosage: ORAL
     Route: 048
     Dates: end: 20020101
  2. PREMARIN [Suspect]
     Dosage: TOPICAL
     Route: 061
     Dates: start: 19970101
  3. PREMARIN [Suspect]
  4. PROVERA [Suspect]
     Dosage: 2.5MG DAILY WAS TAKING AT TIME OF THE DVT, ORAL
     Route: 048

REACTIONS (2)
  - DEEP VEIN THROMBOSIS [None]
  - PULMONARY EMBOLISM [None]
